FAERS Safety Report 16991125 (Version 2)
Quarter: 2022Q3

REPORT INFORMATION
  Report Type: Report from Study
  Country: US (occurrence: US)
  Receive Date: 20191104
  Receipt Date: 20220915
  Transmission Date: 20221027
  Serious: Yes (Life-Threatening, Other)
  Sender: FDA-Public Use
  Company Number: US-SHIRE-US201937404

PATIENT
  Age: 55 Year
  Sex: Female

DRUGS (5)
  1. PARATHYROID HORMONE [Suspect]
     Active Substance: PARATHYROID HORMONE
     Indication: Hypoparathyroidism
     Dosage: 75 MICROGRAM, QD
     Route: 058
     Dates: start: 20161226
  2. PARATHYROID HORMONE [Suspect]
     Active Substance: PARATHYROID HORMONE
     Indication: Hypoparathyroidism
     Dosage: 75 MICROGRAM, QD
     Route: 058
     Dates: start: 20161226
  3. PARATHYROID HORMONE [Suspect]
     Active Substance: PARATHYROID HORMONE
     Indication: Hypoparathyroidism
     Dosage: 75 MICROGRAM, QD
     Route: 058
     Dates: start: 20161226
  4. CALCIUM [Concomitant]
     Active Substance: CALCIUM
     Indication: Product used for unknown indication
  5. CALCITRIOL [Concomitant]
     Active Substance: CALCITRIOL
     Indication: Product used for unknown indication

REACTIONS (3)
  - Hypocalcaemia [Unknown]
  - Recalled product [Unknown]
  - Hypercalcaemia [Unknown]

NARRATIVE: CASE EVENT DATE: 20220910
